FAERS Safety Report 4265044-1 (Version None)
Quarter: 2004Q1

REPORT INFORMATION
  Report Type: 
  Country: None (occurrence: None)
  Receive Date: 20040106
  Receipt Date: 20040106
  Transmission Date: 20041129
  Serious: Yes (Death)
  Sender: FDA-Public Use
  Company Number: None

PATIENT
  Age: 74 Year
  Sex: Male
  Weight: 72.1219 kg

DRUGS (9)
  1. CYCLOSPORINE [Suspect]
     Indication: ACUTE MYELOID LEUKAEMIA
     Dosage: 1150 MG PER DAY INTRAVENOUS
     Route: 042
     Dates: start: 20031218, end: 20031220
  2. DAUNORUBICIN HCL [Suspect]
     Dosage: 93 MG PER DAY SUBCONJUNCT
     Route: 057
     Dates: start: 20031219, end: 20031220
  3. CYTARABINE [Concomitant]
  4. CEFEPIME [Concomitant]
  5. DEXAMETHASONE [Concomitant]
  6. ONDANSETRON [Concomitant]
  7. TOPICAL FENTANYL [Concomitant]
  8. AMBIEN [Concomitant]
  9. ALLOPURINOL [Concomitant]

REACTIONS (2)
  - COMA [None]
  - RENAL FAILURE ACUTE [None]
